FAERS Safety Report 15782822 (Version 1)
Quarter: 2019Q1

REPORT INFORMATION
  Report Type: Report from Study
  Country: US (occurrence: US)
  Receive Date: 20190102
  Receipt Date: 20190102
  Transmission Date: 20190417
  Serious: Yes (Hospitalization, Disabling, Other)
  Sender: FDA-Public Use
  Company Number: US-BAYER-2018-242976

PATIENT
  Age: 22 Year
  Sex: Male

DRUGS (1)
  1. NEXAVAR [Suspect]
     Active Substance: SORAFENIB
     Indication: LEUKAEMIA
     Dosage: 400 MG, BID
     Route: 048
     Dates: start: 20181206, end: 20181209

REACTIONS (4)
  - Eye haemorrhage [Not Recovered/Not Resolved]
  - Product use in unapproved indication [None]
  - Off label use [None]
  - Blindness [None]

NARRATIVE: CASE EVENT DATE: 20181206
